FAERS Safety Report 21437087 (Version 2)
Quarter: 2022Q4

REPORT INFORMATION
  Report Type: Report from Study
  Country: CN (occurrence: CN)
  Receive Date: 20221010
  Receipt Date: 20221025
  Transmission Date: 20230112
  Serious: Yes (Hospitalization)
  Sender: FDA-Public Use
  Company Number: CN-KARYOPHARM-2022KPT001202

PATIENT
  Age: 57 Year
  Sex: Male
  Weight: 50 kg

DRUGS (4)
  1. SELINEXOR [Suspect]
     Active Substance: SELINEXOR
     Indication: Diffuse large B-cell lymphoma
     Dosage: 40 MG, WEEKLY
     Route: 048
     Dates: start: 20220517, end: 20220921
  2. RITUXIMAB [Suspect]
     Active Substance: RITUXIMAB
     Indication: Diffuse large B-cell lymphoma
     Dosage: 589 MG, SINGLE
     Route: 042
     Dates: start: 20220517, end: 20220517
  3. RITUXIMAB [Suspect]
     Active Substance: RITUXIMAB
     Dosage: 585 MG, ONCE EVERY 4 WEEKS
     Route: 042
     Dates: start: 20220616, end: 20220907
  4. LENALIDOMIDE [Suspect]
     Active Substance: LENALIDOMIDE
     Indication: Diffuse large B-cell lymphoma
     Dosage: 25 MG, ONCE DAILY ON DAYS 1-10
     Route: 048
     Dates: start: 20220517, end: 20220916

REACTIONS (4)
  - White blood cell count decreased [Recovering/Resolving]
  - Pneumonia [Recovering/Resolving]
  - Platelet count decreased [Recovering/Resolving]
  - Febrile neutropenia [Recovering/Resolving]

NARRATIVE: CASE EVENT DATE: 20220930
